FAERS Safety Report 7432110-9 (Version None)
Quarter: 2011Q2

REPORT INFORMATION
  Report Type: 
  Country: None (occurrence: None)
  Receive Date: 20110422
  Receipt Date: 20110405
  Transmission Date: 20111010
  Serious: No
  Sender: FDA-Public Use
  Company Number: US-B.I. PHARMACEUTICALS,INC./RIDGEFIELD-2011-BP-10071BP

PATIENT
  Sex: Female

DRUGS (7)
  1. PRADAXA [Suspect]
     Indication: ATRIAL FIBRILLATION
     Dosage: 300 MG
     Route: 048
  2. DIGOXIN [Concomitant]
     Dosage: 0.125 MG
     Route: 048
  3. TOPROL-XL [Concomitant]
     Dosage: 12.5 MG
     Route: 048
  4. LOVESA [Concomitant]
     Route: 048
  5. FOLIC ACID [Concomitant]
     Route: 048
  6. VITAMIN D WITH CA++ [Concomitant]
     Route: 048
  7. RINIDARE SAY [Concomitant]
     Route: 048

REACTIONS (1)
  - INTRAOCULAR PRESSURE INCREASED [None]
